FAERS Safety Report 6376601-0 (Version None)
Quarter: 2009Q3

REPORT INFORMATION
  Report Type: 
  Country: None (occurrence: None)
  Receive Date: 20090925
  Receipt Date: 20090923
  Transmission Date: 20100115
  Serious: Yes (Death, Hospitalization, Disabling)
  Sender: FDA-Public Use
  Company Number: PHHO2007IL08933

PATIENT
  Sex: Male
  Weight: 67 kg

DRUGS (2)
  1. TASIGNA [Suspect]
     Indication: CHRONIC MYELOID LEUKAEMIA
     Dosage: 400 MG, BID
     Route: 048
     Dates: start: 20070127, end: 20070221
  2. TASIGNA [Suspect]
     Dosage: 400 MG, BID
     Route: 048
     Dates: start: 20070227, end: 20070520

REACTIONS (7)
  - ATAXIA [None]
  - BLAST CRISIS IN MYELOGENOUS LEUKAEMIA [None]
  - CHRONIC MYELOID LEUKAEMIA [None]
  - GAIT DISTURBANCE [None]
  - MUSCULAR WEAKNESS [None]
  - POLYNEUROPATHY [None]
  - SENSORY DISTURBANCE [None]
